FAERS Safety Report 5906693-1 (Version None)
Quarter: 2008Q3

REPORT INFORMATION
  Report Type: 
  Country: None (occurrence: None)
  Receive Date: 20080930
  Receipt Date: 20080917
  Transmission Date: 20090109
  Serious: Yes (Hospitalization, Other)
  Sender: FDA-Public Use
  Company Number: VNL_00759_2007

PATIENT
  Sex: Female

DRUGS (4)
  1. APO-GO (APO-GO PFS 5 MG/ML SOLUTION FOR INFUSION IN PRE-FILLED SYRINGE [Suspect]
     Indication: PARKINSON'S DISEASE
     Dosage: (4 MG PER HOUR FOR 12 HOURS DAILY SUBCUTANEOUS)
     Route: 058
     Dates: start: 20070501
  2. APO-GO (APO-GO PFS 5 MG/ML SOLUTION FOR INFUSION IN PRE-FILLED SYRINGE [Suspect]
     Indication: PARKINSON'S DISEASE
     Dosage: (2 MG PER HOUR SUBCUTANEOUS)
     Route: 058
     Dates: end: 20080103
  3. MADOPAR /00349201/ [Concomitant]
  4. COMTESS [Concomitant]

REACTIONS (8)
  - BLOOD BLISTER [None]
  - HALLUCINATION [None]
  - INFUSION SITE MASS [None]
  - INFUSION SITE ULCER [None]
  - INJECTION SITE INFECTION [None]
  - NECROSIS [None]
  - PAIN IN EXTREMITY [None]
  - PANNICULITIS [None]
